FAERS Safety Report 18391290 (Version 2)
Quarter: 2020Q4

REPORT INFORMATION
  Report Type: Spontaneous
  Country: US (occurrence: US)
  Receive Date: 20201016
  Receipt Date: 20201021
  Transmission Date: 20210114
  Serious: Yes (Hospitalization)
  Sender: FDA-Public Use
  Company Number: US-ROCHE-2695700

PATIENT
  Age: 61 Year
  Sex: Female

DRUGS (8)
  1. ATORVASTATIN [Concomitant]
     Active Substance: ATORVASTATIN
     Dosage: ONGOING:YES
  2. CLARITIN [Concomitant]
     Active Substance: LORATADINE
     Dosage: ONGOING:YES
  3. ERIVEDGE [Suspect]
     Active Substance: VISMODEGIB
     Indication: BASAL CELL CARCINOMA
     Dosage: BY MOUTH
     Route: 048
     Dates: start: 20200520
  4. ASPIRIN. [Concomitant]
     Active Substance: ASPIRIN
     Dosage: ONGOING:YES
  5. DILTIAZEM. [Concomitant]
     Active Substance: DILTIAZEM
     Dosage: ONGOING:YES
  6. SINGULAIR [Concomitant]
     Active Substance: MONTELUKAST SODIUM
     Dosage: ONGOING YES
  7. ERIVEDGE [Suspect]
     Active Substance: VISMODEGIB
     Dosage: ONGOING: UNKNOWN
     Route: 048
     Dates: start: 20200513
  8. PROGESTERONE. [Concomitant]
     Active Substance: PROGESTERONE
     Dosage: ONGOING YES

REACTIONS (4)
  - Intracranial aneurysm [Unknown]
  - Diplopia [Unknown]
  - Fungal infection [Recovered/Resolved]
  - Dizziness [Unknown]

NARRATIVE: CASE EVENT DATE: 20200514
